FAERS Safety Report 24994504 (Version 1)
Quarter: 2025Q1

REPORT INFORMATION
  Report Type: Spontaneous
  Country: US (occurrence: None)
  Receive Date: 20250220
  Receipt Date: 20250220
  Transmission Date: 20250408
  Serious: Yes (Hospitalization)
  Sender: FDA-CTU
  Company Number: None

PATIENT
  Age: 63 Year

DRUGS (1)
  1. EMPAGLIFLOZIN [Suspect]
     Active Substance: EMPAGLIFLOZIN
     Indication: Diabetes mellitus
     Route: 048
     Dates: start: 20230607, end: 20240614

REACTIONS (4)
  - Hyperglycaemia [None]
  - Euglycaemic diabetic ketoacidosis [None]
  - Ketogenic diet [None]
  - Therapy interrupted [None]

NARRATIVE: CASE EVENT DATE: 20240614
